FAERS Safety Report 8492944-9 (Version None)
Quarter: 2012Q3

REPORT INFORMATION
  Report Type: 
  Country: None (occurrence: None)
  Receive Date: 20120706
  Receipt Date: 20120704
  Transmission Date: 20120928
  Serious: No
  Sender: FDA-Public Use
  Company Number: GR-GLAXOSMITHKLINE-B0799619A

PATIENT
  Age: 60 Year
  Sex: Male

DRUGS (4)
  1. SPIRIVA [Suspect]
     Indication: CHRONIC OBSTRUCTIVE PULMONARY DISEASE
     Route: 065
  2. CORTICOSTEROIDS [Concomitant]
  3. FLUTICASONE PROPIONATE/SALMETEROL [Suspect]
     Indication: CHRONIC OBSTRUCTIVE PULMONARY DISEASE
     Dosage: 500MCG PER DAY
     Route: 048
     Dates: start: 20120421
  4. POLYGAM S/D [Concomitant]

REACTIONS (3)
  - BURNING SENSATION [None]
  - RASH [None]
  - PRODUCT QUALITY ISSUE [None]
